FAERS Safety Report 18995146 (Version 1)
Quarter: 2021Q1

REPORT INFORMATION
  Report Type: Report from Study
  Country: None (occurrence: US)
  Receive Date: 20210311
  Receipt Date: 20210311
  Transmission Date: 20210420
  Serious: Yes (Other)
  Sender: FDA-Public Use
  Company Number: US-ABBVIE-21K-163-3806126-00

PATIENT
  Age: 35 Year
  Sex: Male

DRUGS (1)
  1. HUMIRA [Suspect]
     Active Substance: ADALIMUMAB
     Indication: CROHN^S DISEASE
     Route: 058

REACTIONS (7)
  - Throat tightness [Unknown]
  - Accident [Unknown]
  - Pain [Unknown]
  - Stress [Unknown]
  - Crohn^s disease [Unknown]
  - Back injury [Unknown]
  - Rash [Unknown]

NARRATIVE: CASE EVENT DATE: 20200415
